FAERS Safety Report 5513117-5 (Version None)
Quarter: 2007Q4

REPORT INFORMATION
  Report Type: 
  Country: None (occurrence: None)
  Receive Date: 20071112
  Receipt Date: 20071031
  Transmission Date: 20080405
  Serious: Yes (Hospitalization)
  Sender: FDA-Public Use
  Company Number: GR-ROCHE-529375

PATIENT
  Age: 86 Year
  Sex: Female
  Weight: 80 kg

DRUGS (15)
  1. XELODA [Suspect]
     Indication: BREAST CANCER
     Route: 048
  2. ZYLAPOUR [Suspect]
     Indication: HYPERURICAEMIA
     Route: 048
     Dates: start: 20070928, end: 20071005
  3. VAXIGRIP [Suspect]
     Indication: IMMUNISATION
     Dosage: FORMULATION REPORTED AS INJECTION FOR SOLUTION.
     Route: 065
  4. SALOSPIR [Concomitant]
  5. ZANTAC [Concomitant]
  6. PRIMPERAN INJ [Concomitant]
  7. NETROMYCIN [Concomitant]
  8. LANTUS [Concomitant]
  9. AKINETON [Concomitant]
  10. LASIX [Concomitant]
  11. 1 CONCOMITANT DRUG [Concomitant]
     Dosage: DRUG: PENFLURIDOL.
  12. AERIUS [Concomitant]
  13. DIGOXIN [Concomitant]
  14. BONDRONAT [Concomitant]
  15. FASLODEX [Concomitant]

REACTIONS (3)
  - PYREXIA [None]
  - TOXIC EPIDERMAL NECROLYSIS [None]
  - VOMITING [None]
